FAERS Safety Report 8823219 (Version 2)
Quarter: 2012Q4

REPORT INFORMATION
  Report Type: 
  Country: TH (occurrence: TH)
  Receive Date: 20121003
  Receipt Date: 20121022
  Transmission Date: 20130627
  Serious: Yes (Hospitalization, Other)
  Sender: FDA-Public Use
  Company Number: TH-ELI_LILLY_AND_COMPANY-TH201209006973

PATIENT
  Age: 65 Year
  Sex: Female

DRUGS (2)
  1. FORTEO [Suspect]
     Indication: OSTEOPOROSIS
     Dosage: 20 ug, qd
     Route: 058
  2. ANTIINFLAMMATORY AGENTS [Concomitant]

REACTIONS (3)
  - Pulmonary oedema [Recovered/Resolved]
  - Oedema peripheral [Unknown]
  - Face oedema [Unknown]
